FAERS Safety Report 5486411-4 (Version None)
Quarter: 2007Q4

REPORT INFORMATION
  Report Type: 
  Country: None (occurrence: None)
  Receive Date: 20071012
  Receipt Date: 20071001
  Transmission Date: 20080405
  Serious: Yes (Death)
  Sender: FDA-Public Use
  Company Number: 07-000185

PATIENT
  Sex: 0

DRUGS (1)
  1. LOESTRIN 24 FE [Suspect]
     Dosage: TRANSPLACENTAL
     Route: 064
     Dates: end: 20070101

REACTIONS (4)
  - ABORTION SPONTANEOUS [None]
  - DRUG EXPOSURE DURING PREGNANCY [None]
  - INTRA-UTERINE DEATH [None]
  - PREGNANCY ON ORAL CONTRACEPTIVE [None]
